FAERS Safety Report 11376037 (Version 2)
Quarter: 2015Q3

REPORT INFORMATION
  Report Type: Spontaneous
  Country: US (occurrence: US)
  Receive Date: 20150813
  Receipt Date: 20150901
  Transmission Date: 20151125
  Serious: Yes (Other)
  Sender: FDA-Public Use
  Company Number: US-ALLERGAN-1515811US

PATIENT
  Age: 55 Year
  Sex: Male
  Weight: 86.17 kg

DRUGS (4)
  1. TOPIRAMATE. [Concomitant]
     Active Substance: TOPIRAMATE
     Indication: HEADACHE
     Dosage: 100 MG, QD
     Dates: start: 201506
  2. ALPHAGAN P [Suspect]
     Active Substance: BRIMONIDINE TARTRATE
     Indication: GLAUCOMA
     Dosage: 2 GTT, BID
     Route: 047
     Dates: start: 20110531
  3. MORPHINE [Concomitant]
     Active Substance: MORPHINE
     Indication: PAIN
     Dosage: 15 MG, TID
     Dates: start: 201502
  4. GLIPID                             /00390201/ [Concomitant]
     Indication: DIABETES MELLITUS
     Dosage: 10 MG, BID
     Dates: start: 1998

REACTIONS (1)
  - Blindness [Not Recovered/Not Resolved]
